FAERS Safety Report 9757564 (Version 2)
Quarter: 2014Q1

REPORT INFORMATION
  Report Type: Spontaneous
  Country: US (occurrence: US)
  Receive Date: 20131216
  Receipt Date: 20140102
  Transmission Date: 20141002
  Serious: No
  Sender: FDA-Public Use
  Company Number: US-009507513-1312USA004843

PATIENT
  Age: 52 Year
  Sex: Female

DRUGS (3)
  1. PROVENTIL [Suspect]
     Indication: ASTHMA
     Dosage: UNK, PRN
     Route: 055
     Dates: start: 199804
  2. SUDAFED [Concomitant]
  3. CHLOR-TRIMETON [Concomitant]
     Route: 048

REACTIONS (3)
  - Choking [Recovered/Resolved]
  - Incorrect dose administered [Unknown]
  - Device malfunction [Unknown]
